FAERS Safety Report 7781696-3 (Version None)
Quarter: 2011Q3

REPORT INFORMATION
  Report Type: 
  Country: None (occurrence: None)
  Receive Date: 20110927
  Receipt Date: 20110923
  Transmission Date: 20111222
  Serious: Yes (Hospitalization)
  Sender: FDA-Public Use
  Company Number: US-GLAXOSMITHKLINE-A0725140A

PATIENT
  Age: 58 Year
  Sex: Female
  Weight: 147.3 kg

DRUGS (6)
  1. AVANDIA [Suspect]
     Indication: TYPE 2 DIABETES MELLITUS
     Dosage: 8MG PER DAY
     Route: 065
     Dates: start: 20050427, end: 20051019
  2. GLUCOTROL [Concomitant]
     Dates: start: 20000101, end: 20050101
  3. METOPROLOL TARTRATE [Concomitant]
  4. METFORMIN HCL [Concomitant]
     Dates: start: 20000101, end: 20080805
  5. GLUCOPHAGE [Concomitant]
  6. COZAAR [Concomitant]

REACTIONS (2)
  - HEART INJURY [None]
  - CARDIAC FAILURE CONGESTIVE [None]
